FAERS Safety Report 7053045-X (Version None)
Quarter: 2010Q4

REPORT INFORMATION
  Report Type: 
  Country: None (occurrence: None)
  Receive Date: 20101020
  Receipt Date: 20101008
  Transmission Date: 20110411
  Serious: Yes (Hospitalization)
  Sender: FDA-Public Use
  Company Number: US-ELI_LILLY_AND_COMPANY-US200905004476

PATIENT
  Sex: Male

DRUGS (15)
  1. BYETTA [Suspect]
     Dosage: 5 UG, UNKNOWN
     Route: 065
     Dates: start: 20050601, end: 20071201
  2. PREVACID [Concomitant]
     Dosage: 30 MG, 2/D
  3. GLYBURIDE [Concomitant]
     Dosage: 5 MG, 2/D
  4. VICODIN [Concomitant]
     Dosage: UNK, AS NEEDED
  5. ACTOS [Concomitant]
     Dosage: 30 MG, UNKNOWN
  6. CELEBREX [Concomitant]
     Dosage: 200 MG, DAILY (1/D)
  7. PRILOSEC [Concomitant]
     Dosage: UNK, UNKNOWN
  8. CREON [Concomitant]
     Dosage: UNK, UNKNOWN
  9. LEVAQUIN [Concomitant]
     Dosage: UNK, UNKNOWN
  10. CHANTIX [Concomitant]
     Dosage: UNK, UNKNOWN
  11. LIDODERM [Concomitant]
     Dosage: 5 %, UNKNOWN
  12. METOCLOPRAMIDE [Concomitant]
     Dosage: 5 MG, UNKNOWN
  13. HYOSCYAMINE [Concomitant]
     Dosage: 125 MG, UNKNOWN
  14. STARLIX [Concomitant]
     Dosage: 120 MG, UNKNOWN
  15. DIAZEPAM [Concomitant]
     Dosage: 5 MG, UNKNOWN

REACTIONS (3)
  - CHOLELITHIASIS [None]
  - OFF LABEL USE [None]
  - PANCREATITIS ACUTE [None]
